FAERS Safety Report 8217242-X (Version None)
Quarter: 2012Q1

REPORT INFORMATION
  Report Type: 
  Country: None (occurrence: None)
  Receive Date: 20120315
  Receipt Date: 20120206
  Transmission Date: 20120608
  Serious: Yes (Other)
  Sender: FDA-Public Use
  Company Number: ADR-UNK-046

PATIENT
  Age: 280 Day
  Sex: Female
  Weight: 3.261 kg

DRUGS (4)
  1. EFAVIRENZ [Suspect]
     Indication: ACQUIRED IMMUNODEFICIENCY SYNDROME
     Dosage: 1200 MG/DAY + ORAL
     Route: 048
     Dates: start: 20111202
  2. RALTEGRAVIR [Concomitant]
  3. COMBIVIR [Concomitant]
  4. RETROVIR [Concomitant]

REACTIONS (2)
  - CLEFT LIP AND PALATE [None]
  - MATERNAL DRUGS AFFECTING FOETUS [None]
